FAERS Safety Report 7288313-X (Version None)
Quarter: 2011Q1

REPORT INFORMATION
  Report Type: 
  Country: None (occurrence: None)
  Receive Date: 20110211
  Receipt Date: 20110203
  Transmission Date: 20110831
  Serious: Yes (Disabling)
  Sender: FDA-Public Use
  Company Number: BE-ROCHE-757738

PATIENT
  Sex: Male
  Weight: 63 kg

DRUGS (1)
  1. ISOTRETINOIN [Suspect]
     Indication: ACNE
     Dosage: FREQUENCY: DAILY, STARTED ON -END OF 2004 AND BEGINNING OF 2005. ENDED ON : AFTER 3-6 MONTHS
     Route: 048

REACTIONS (6)
  - SOMNOLENCE [None]
  - DEPRESSION SUICIDAL [None]
  - BODY DYSMORPHIC DISORDER [None]
  - MEMORY IMPAIRMENT [None]
  - MANIA [None]
  - PARANOIA [None]
